FAERS Safety Report 15376005 (Version 2)
Quarter: 2019Q1

REPORT INFORMATION
  Report Type: Report from Study
  Country: US (occurrence: US)
  Receive Date: 20180912
  Receipt Date: 20190131
  Transmission Date: 20190417
  Serious: No
  Sender: FDA-Public Use
  Company Number: PHEH2018US037046

PATIENT
  Sex: Male

DRUGS (1)
  1. ENTRESTO [Suspect]
     Active Substance: SACUBITRIL\VALSARTAN
     Indication: CARDIAC FAILURE
     Dosage: 24 MG, BID
     Route: 048

REACTIONS (6)
  - Hypersomnia [Unknown]
  - Lethargy [Unknown]
  - Fatigue [Unknown]
  - Drug ineffective [Unknown]
  - Cardiomegaly [Unknown]
  - Underdose [Unknown]
